FAERS Safety Report 8618751-1 (Version None)
Quarter: 2012Q3

REPORT INFORMATION
  Report Type: 
  Country: None (occurrence: None)
  Receive Date: 20120824
  Receipt Date: 20120817
  Transmission Date: 20120928
  Serious: Yes (Death, Hospitalization, Other)
  Sender: FDA-Public Use
  Company Number: US-CELGENEUS-163-50794-12040850

PATIENT
  Age: 36 Year
  Sex: Male

DRUGS (20)
  1. VALTREX [Concomitant]
     Indication: VIRAL INFECTION
     Dosage: 1 TABLET
     Route: 048
     Dates: start: 20100809
  2. TESSALON [Concomitant]
     Indication: COUGH
     Dosage: 1 CAPSULE
     Route: 048
     Dates: start: 20111108
  3. ENTOCORT EC [Concomitant]
     Dosage: 1 CAPSULE
     Route: 048
     Dates: start: 20111205, end: 20120105
  4. VIDAZA [Suspect]
     Dosage: 142 MILLIGRAM
     Route: 041
     Dates: start: 20120214, end: 20120220
  5. MIDOSTAURIN [Suspect]
     Dosage: 50 MILLIGRAM
     Route: 048
     Dates: start: 20120221, end: 20120222
  6. VORICONAZOLE [Concomitant]
     Indication: FUNGAL INFECTION
     Dosage: 1 TABLET
     Route: 048
     Dates: start: 20110108
  7. HYDREA [Concomitant]
     Indication: PROPHYLAXIS
     Dosage: 500 MILLIGRAM
     Route: 065
     Dates: start: 20120109, end: 20120122
  8. ATIVAN [Concomitant]
     Indication: ANXIETY
     Dosage: 1 TABLET
     Route: 048
     Dates: start: 20111108
  9. PHENERGAN HCL [Concomitant]
     Indication: NAUSEA
     Dosage: 1 TABLET
     Route: 048
     Dates: start: 20111108
  10. HYDROCODONE BITARTRATE [Concomitant]
     Indication: PAIN
     Dosage: 1 TABLET
     Route: 048
     Dates: start: 20120109
  11. PROGRAF [Concomitant]
     Indication: PROPHYLAXIS AGAINST GRAFT VERSUS HOST DISEASE
     Dosage: 1 CAPSULE
     Route: 048
     Dates: start: 20110108
  12. CLARITIN [Concomitant]
     Indication: MULTIPLE ALLERGIES
     Dosage: 1 TABLET
     Route: 048
     Dates: start: 20111108
  13. NEXIUM [Concomitant]
     Dosage: 1 TABLET
     Route: 048
     Dates: start: 20100809
  14. METROPROLOT TARTRATE [Concomitant]
     Indication: HYPERTENSION
     Dosage: 1 TABLET
     Route: 048
     Dates: start: 20110108
  15. AMBIEN [Concomitant]
     Dosage: 1 TABLET
     Route: 048
     Dates: start: 20111108
  16. MAGNESIUM OXIDE [Concomitant]
     Indication: SUPPLEMENTATION THERAPY
     Dosage: 1 TABLET
     Route: 048
     Dates: start: 20111121
  17. LISINOPRIL [Concomitant]
     Indication: HYPERTENSION
     Dosage: 1 TABLET
     Route: 048
     Dates: start: 20110108
  18. DILAUDID [Concomitant]
     Indication: PAIN
     Dosage: 1 TO 2 TABLETS
     Route: 048
     Dates: start: 20111108
  19. ZOFRAN [Concomitant]
     Indication: NAUSEA
     Dosage: 1 TABLET
     Route: 048
     Dates: start: 20111115
  20. MAGNESIUM SULFATE [Concomitant]
     Dosage: 64 MILLIEQUIVALENTS
     Route: 065
     Dates: start: 20120117

REACTIONS (2)
  - ACUTE MYELOID LEUKAEMIA [None]
  - PNEUMONIA [None]
